FAERS Safety Report 9564481 (Version 2)
Quarter: 2013Q4

REPORT INFORMATION
  Report Type: Spontaneous
  Country: US (occurrence: US)
  Receive Date: 20130930
  Receipt Date: 20131021
  Transmission Date: 20140711
  Serious: No
  Sender: FDA-Public Use
  Company Number: US-009507513-1309USA013130

PATIENT
  Age: 28 Year
  Sex: Female
  Weight: 69.39 kg

DRUGS (1)
  1. NEXPLANON [Suspect]
     Indication: CONTRACEPTION
     Dosage: 68MG/ 3 YEAR IMPLANT
     Route: 059
     Dates: start: 20130919

REACTIONS (3)
  - Device difficult to use [Recovered/Resolved with Sequelae]
  - Product quality issue [Unknown]
  - No adverse event [Unknown]
